FAERS Safety Report 20471801 (Version 6)
Quarter: 2022Q3

REPORT INFORMATION
  Report Type: Report from Study
  Country: US (occurrence: US)
  Receive Date: 20220214
  Receipt Date: 20220728
  Transmission Date: 20221026
  Serious: No
  Sender: FDA-Public Use
  Company Number: US-NOVARTISTESTPH-NVSC2022US033562

PATIENT
  Age: 56 Year
  Sex: Female

DRUGS (2)
  1. COSENTYX [Suspect]
     Active Substance: SECUKINUMAB
     Indication: Psoriatic arthropathy
     Dosage: 300 MG, QMO (Q WEEK FOR FIVE WEEKS AND THEN Q FOUR WEEKS)
     Route: 058
     Dates: start: 20220113
  2. METHOTREXATE [Suspect]
     Active Substance: METHOTREXATE
     Indication: Product used for unknown indication
     Dosage: UNK
     Route: 065

REACTIONS (4)
  - Arthralgia [Unknown]
  - Arthritis [Unknown]
  - Bronchitis [Unknown]
  - Fatigue [Not Recovered/Not Resolved]

NARRATIVE: CASE EVENT DATE: 20220113
